FAERS Safety Report 21809351 (Version 2)
Quarter: 2023Q1

REPORT INFORMATION
  Report Type: Spontaneous
  Country: US (occurrence: US)
  Receive Date: 20230103
  Receipt Date: 20230103
  Transmission Date: 20230418
  Serious: Yes (Other)
  Sender: FDA-Public Use
  Company Number: US-IPSEN Group, Research and Development-2022-34998

PATIENT
  Age: 47 Year
  Sex: Female

DRUGS (5)
  1. DYSPORT [Suspect]
     Active Substance: ABOBOTULINUMTOXINA
     Indication: Skin cosmetic procedure
     Route: 065
  2. XEOMIN [Suspect]
     Active Substance: INCOBOTULINUMTOXINA
     Indication: Skin cosmetic procedure
     Dosage: 1 IN 1 TOTAL
     Route: 030
     Dates: start: 20221108, end: 20221108
  3. XEOMIN [Suspect]
     Active Substance: INCOBOTULINUMTOXINA
     Dosage: 1 IN 1 TOTAL
     Route: 030
     Dates: start: 20221121, end: 20221121
  4. VITAMINS [Concomitant]
     Active Substance: VITAMINS
  5. BOTOX [Concomitant]
     Active Substance: ONABOTULINUMTOXINA
     Dosage: 1 IN 1 TOTAL

REACTIONS (3)
  - Breast cancer [Unknown]
  - Pruritus [Unknown]
  - Drug ineffective [Unknown]

NARRATIVE: CASE EVENT DATE: 20221101
